FAERS Safety Report 19610589 (Version 1)
Quarter: 2021Q3

REPORT INFORMATION
  Report Type: Report from Study
  Country: CA (occurrence: CA)
  Receive Date: 20210726
  Receipt Date: 20210726
  Transmission Date: 20211014
  Serious: Yes (Hospitalization, Other)
  Sender: FDA-Public Use
  Company Number: NVSC2021CA159389

PATIENT
  Age: 44 Year
  Sex: Female

DRUGS (2)
  1. MAYZENT [Suspect]
     Active Substance: SIPONIMOD
     Indication: SECONDARY PROGRESSIVE MULTIPLE SCLEROSIS
     Dosage: 0.25 MG
     Route: 048
     Dates: start: 20210713
  2. MAYZENT [Suspect]
     Active Substance: SIPONIMOD
     Dosage: 3 PILLS
     Route: 065

REACTIONS (5)
  - Chest discomfort [Unknown]
  - Anxiety [Unknown]
  - Electrocardiogram ST segment depression [Unknown]
  - Abdominal discomfort [Unknown]
  - Fatigue [Unknown]

NARRATIVE: CASE EVENT DATE: 20210713
